FAERS Safety Report 7318612-4 (Version None)
Quarter: 2011Q1

REPORT INFORMATION
  Report Type: 
  Country: None (occurrence: None)
  Receive Date: 20110223
  Receipt Date: 20110223
  Transmission Date: 20110831
  Serious: No
  Sender: FDA-Public Use
  Company Number: None

PATIENT
  Age: 70 Year
  Sex: Male
  Weight: 83.9154 kg

DRUGS (1)
  1. NIASPAN [Suspect]
     Indication: PRODUCT USED FOR UNKNOWN INDICATION
     Dosage: 1 TAB IN EVENING
     Dates: start: 20110128, end: 20110128

REACTIONS (9)
  - ASTHENIA [None]
  - DIZZINESS [None]
  - DIARRHOEA [None]
  - HYPERHIDROSIS [None]
  - PARAESTHESIA [None]
  - HYPOAESTHESIA [None]
  - NAUSEA [None]
  - FLUSHING [None]
  - ABDOMINAL DISCOMFORT [None]
